FAERS Safety Report 4765537-4 (Version None)
Quarter: 2005Q3

REPORT INFORMATION
  Report Type: 
  Country: None (occurrence: None)
  Receive Date: 20050908
  Receipt Date: 20050908
  Transmission Date: 20060218
  Serious: Yes (Hospitalization)
  Sender: FDA-Public Use
  Company Number: None

PATIENT
  Age: 44 Year
  Sex: Male
  Weight: 107 kg

DRUGS (1)
  1. PLETAL [Suspect]

REACTIONS (1)
  - OEDEMA PERIPHERAL [None]
